FAERS Safety Report 18941780 (Version 1)
Quarter: 2021Q1

REPORT INFORMATION
  Report Type: Spontaneous
  Country: US (occurrence: US)
  Receive Date: 20210225
  Receipt Date: 20210225
  Transmission Date: 20210420
  Serious: No
  Sender: FDA-Public Use
  Company Number: US-BRACCO-2020US00152

PATIENT
  Age: 15 Year
  Sex: Male

DRUGS (1)
  1. ISOVUE [Suspect]
     Active Substance: IOPAMIDOL
     Indication: DIAGNOSTIC PROCEDURE
     Dosage: UNK UNK, SINGLE
     Dates: start: 2015, end: 2015

REACTIONS (2)
  - Muscle contractions involuntary [Recovered/Resolved]
  - Skin discolouration [Recovered/Resolved]

NARRATIVE: CASE EVENT DATE: 2015
